FAERS Safety Report 24904987 (Version 3)
Quarter: 2025Q1

REPORT INFORMATION
  Report Type: Spontaneous
  Country: US (occurrence: US)
  Receive Date: 20250130
  Receipt Date: 20250227
  Transmission Date: 20250409
  Serious: Yes (Other)
  Sender: PFIZER
  Company Number: US-PFIZER INC-202500021159

PATIENT
  Age: 81 Year
  Sex: Female

DRUGS (1)
  1. TUKYSA [Suspect]
     Active Substance: TUCATINIB
     Dosage: 300 MG, 2X/DAY(TAKE TWO TABLETS OF 150 MG BY MOUTH TWICE A DAY)
     Route: 048

REACTIONS (1)
  - Parkinson^s disease [Not Recovered/Not Resolved]
